FAERS Safety Report 4815656-9 (Version None)
Quarter: 2005Q4

REPORT INFORMATION
  Report Type: 
  Country: None (occurrence: None)
  Receive Date: 20051027
  Receipt Date: 20051014
  Transmission Date: 20060501
  Serious: Yes (Hospitalization)
  Sender: FDA-Public Use
  Company Number: 2005RR-00945

PATIENT
  Sex: Female

DRUGS (6)
  1. CLOMIPRAMINE HCL [Suspect]
     Dosage: TRANSPLACENTAL
     Route: 064
  2. SENNA (SENNA) [Suspect]
     Dosage: TRANSPLACENTAL
     Route: 064
  3. LACTULOSE [Suspect]
     Dosage: TRANSPLACENTAL
     Route: 064
  4. CYCLIZINE (CYCLIZINE) [Suspect]
     Dosage: TRANSPLACENTAL
     Route: 064
  5. GAVISCON [Suspect]
     Dosage: TRANSPLACENTAL
     Route: 064
  6. AMOXICILLIN CAPSULE 500MG BP (AMOXICILLIN) UNKNOWN [Suspect]
     Dosage: TRANSPLACENTAL
     Route: 064

REACTIONS (3)
  - APGAR SCORE LOW [None]
  - DRUG EXPOSURE DURING PREGNANCY [None]
  - JAUNDICE NEONATAL [None]
